FAERS Safety Report 9242282 (Version 1)
Quarter: 2013Q2

REPORT INFORMATION
  Report Type: Spontaneous
  Country: CA (occurrence: CA)
  Receive Date: 20130419
  Receipt Date: 20130419
  Transmission Date: 20140414
  Serious: Yes (Other)
  Sender: FDA-Public Use
  Company Number: CA-TEVA-399428USA

PATIENT
  Age: 73 Year
  Sex: Male
  Weight: 80 kg

DRUGS (1)
  1. AMLODIPINE [Suspect]
     Dosage: 5 MILLIGRAM DAILY;

REACTIONS (2)
  - Periodontal disease [Recovered/Resolved]
  - Gingival hyperplasia [Recovered/Resolved]
